FAERS Safety Report 19247162 (Version 1)
Quarter: 2021Q2

REPORT INFORMATION
  Report Type: Spontaneous
  Country: FI (occurrence: FI)
  Receive Date: 20210512
  Receipt Date: 20210512
  Transmission Date: 20210717
  Serious: Yes (Other)
  Sender: FDA-Public Use
  Company Number: FI-PFIZER INC-2021478232

PATIENT
  Age: 34 Year
  Sex: Female

DRUGS (1)
  1. HUMATIN [Suspect]
     Active Substance: PAROMOMYCIN SULFATE
     Indication: DIENTAMOEBA INFECTION
     Dosage: 1500 MG, DAILY
     Route: 048
     Dates: start: 20201110, end: 20201113

REACTIONS (3)
  - Poor quality sleep [Recovering/Resolving]
  - Tinnitus [Recovering/Resolving]
  - Ototoxicity [Recovering/Resolving]

NARRATIVE: CASE EVENT DATE: 20201112
